FAERS Safety Report 21243463 (Version 1)
Quarter: 2022Q3

REPORT INFORMATION
  Report Type: Spontaneous
  Country: US (occurrence: None)
  Receive Date: 20220822
  Receipt Date: 20220822
  Transmission Date: 20221027
  Serious: No
  Sender: FDA-Public Use
  Company Number: None

PATIENT
  Age: 36 Year
  Sex: Female
  Weight: 49.5 kg

DRUGS (1)
  1. BREMELANOTIDE [Suspect]
     Active Substance: BREMELANOTIDE
     Indication: Libido decreased
     Dosage: OTHER QUANTITY : 0.5 INJECTION(S);?OTHER FREQUENCY : 8X MONTH;?
     Route: 058
     Dates: start: 20220822

REACTIONS (4)
  - Flushing [None]
  - Nausea [None]
  - Headache [None]
  - Arthralgia [None]

NARRATIVE: CASE EVENT DATE: 20220822
